FAERS Safety Report 7226014-4 (Version None)
Quarter: 2011Q1

REPORT INFORMATION
  Report Type: 
  Country: None (occurrence: None)
  Receive Date: 20110113
  Receipt Date: 20110105
  Transmission Date: 20110831
  Serious: Yes (Death, Hospitalization)
  Sender: FDA-Public Use
  Company Number: JP-AMGEN-JPNCT2011002123

PATIENT

DRUGS (7)
  1. ALDACTONE [Suspect]
     Route: 048
  2. CALONAL [Concomitant]
     Route: 048
  3. PANITUMUMAB [Suspect]
     Indication: COLORECTAL CANCER
     Dosage: 6 MG, Q2WK
     Route: 041
     Dates: start: 20100903
  4. OXYCONTIN [Concomitant]
     Route: 048
  5. NOVAMIN [Concomitant]
     Route: 048
  6. LASIX [Concomitant]
     Route: 048
  7. OXINORM [Concomitant]
     Route: 048

REACTIONS (3)
  - HYPERKALAEMIA [None]
  - HYPOCALCAEMIA [None]
  - CEREBRAL INFARCTION [None]
